FAERS Safety Report 21240056 (Version 2)
Quarter: 2023Q1

REPORT INFORMATION
  Report Type: Report from Study
  Country: US (occurrence: US)
  Receive Date: 20220822
  Receipt Date: 20230213
  Transmission Date: 20230418
  Serious: Yes (Other)
  Sender: FDA-Public Use
  Company Number: US-NOVARTISTESTPH-NVSC2022US186082

PATIENT
  Age: 66 Year
  Sex: Female

DRUGS (1)
  1. GILENYA [Suspect]
     Active Substance: FINGOLIMOD HYDROCHLORIDE
     Indication: Multiple sclerosis
     Dosage: 0.5 MG, QD (STOPPED MED JAN OR FEB 2022)
     Route: 048
     Dates: start: 20220816, end: 2022

REACTIONS (4)
  - Rebound effect [Unknown]
  - Multiple sclerosis [Unknown]
  - Balance disorder [Unknown]
  - Fatigue [Unknown]

NARRATIVE: CASE EVENT DATE: 20220816
